FAERS Safety Report 11861218 (Version 4)
Quarter: 2016Q2

REPORT INFORMATION
  Report Type: Spontaneous
  Country: US (occurrence: US)
  Receive Date: 20151222
  Receipt Date: 20160415
  Transmission Date: 20160815
  Serious: Yes (Other)
  Sender: FDA-Public Use
  Company Number: US-009507513-1512USA010610

PATIENT
  Sex: Male

DRUGS (1)
  1. KEYTRUDA [Suspect]
     Active Substance: PEMBROLIZUMAB
     Indication: METASTATIC MALIGNANT MELANOMA
     Dosage: UNK, Q3W
     Route: 042
     Dates: start: 2015

REACTIONS (10)
  - Myalgia [Not Recovered/Not Resolved]
  - Fatigue [Recovering/Resolving]
  - Vitiligo [Not Recovered/Not Resolved]
  - Malignant neoplasm progression [Recovering/Resolving]
  - Insomnia [Recovered/Resolved]
  - Rash pruritic [Not Recovered/Not Resolved]
  - Arthralgia [Recovering/Resolving]
  - Pain [Not Recovered/Not Resolved]
  - Sleep disorder due to general medical condition, insomnia type [Not Recovered/Not Resolved]
  - Abdominal discomfort [Recovering/Resolving]

NARRATIVE: CASE EVENT DATE: 2015
